FAERS Safety Report 10242216 (Version 1)
Quarter: 2014Q1

REPORT INFORMATION
  Report Type: Spontaneous
  Country: US (occurrence: None)
  Receive Date: 20140306
  Receipt Date: 20140306
  Transmission Date: 20141002
  Serious: Yes (Other)
  Sender: FDA-Public Use
  Company Number: 163-21880-13061946

PATIENT
  Age: 64 Year
  Sex: Female
  Weight: 58.06 kg

DRUGS (8)
  1. REVLIMID (LENALIDOMIDE) (25 MILLIGRAM, CAPSULES) [Suspect]
     Indication: PLASMA CELL MYELOMA
     Dosage: 1 IN 1 D
     Route: 048
     Dates: start: 20120605, end: 20130514
  2. CENTRUM SILVER [Concomitant]
  3. CALTRATE 600 + D (CALCITE D) [Concomitant]
  4. DEXAMETHASONE [Concomitant]
  5. OMEPRAZOLE [Concomitant]
  6. SENNA LAXATIVE (SENNOSIDE A+B) [Concomitant]
  7. FISH OIL [Concomitant]
  8. AMLODIPINE [Concomitant]

REACTIONS (1)
  - Flushing [None]
